FAERS Safety Report 4543382-2 (Version None)
Quarter: 2004Q4

REPORT INFORMATION
  Report Type: 
  Country: None (occurrence: None)
  Receive Date: 20041230
  Receipt Date: 20041230
  Transmission Date: 20050328
  Serious: Yes (Other)
  Sender: FDA-Public Use
  Company Number: None

PATIENT
  Age: 48 Year
  Sex: Male
  Weight: 133.3575 kg

DRUGS (1)
  1. LOTENSIN [Suspect]
     Indication: HYPERTENSION
     Dosage: 10MG PO DAILY
     Route: 048
     Dates: start: 20040618

REACTIONS (4)
  - ABDOMINAL DISTENSION [None]
  - ABDOMINAL PAIN [None]
  - BLOOD PRESSURE INADEQUATELY CONTROLLED [None]
  - CONSTIPATION [None]
